FAERS Safety Report 18115034 (Version 1)
Quarter: 2020Q3

REPORT INFORMATION
  Report Type: Spontaneous
  Country: ES (occurrence: ES)
  Receive Date: 20200805
  Receipt Date: 20200805
  Transmission Date: 20201103
  Serious: Yes (Death)
  Sender: FDA-Public Use
  Company Number: NVSC2020ES212372

PATIENT
  Age: 88 Year
  Sex: Female
  Weight: 67 kg

DRUGS (2)
  1. MEROPENEM. [Concomitant]
     Active Substance: MEROPENEM
     Indication: URINARY TRACT INFECTION
     Dosage: 3 G, QD
     Route: 042
     Dates: start: 20200629, end: 20200703
  2. AMOXICILINA + CLAVULANATO DE POTASSIO [Suspect]
     Active Substance: AMOXICILLIN\CLAVULANATE POTASSIUM
     Indication: URINARY TRACT INFECTION
     Dosage: 2625 MG, QID
     Route: 048
     Dates: start: 20200703, end: 20200706

REACTIONS (1)
  - Tubulointerstitial nephritis [Fatal]

NARRATIVE: CASE EVENT DATE: 20200709
